FAERS Safety Report 23821207 (Version 2)
Quarter: 2024Q2

REPORT INFORMATION
  Report Type: Report from Study
  Country: US (occurrence: US)
  Receive Date: 20240506
  Receipt Date: 20240510
  Transmission Date: 20240716
  Serious: Yes (Other)
  Sender: FDA-Public Use
  Company Number: US-BAYER-2024A061852

PATIENT
  Age: 69 Year

DRUGS (1)
  1. KERENDIA [Suspect]
     Active Substance: FINERENONE
     Indication: Chronic kidney disease
     Dosage: UNK

REACTIONS (4)
  - Pelvic inflammatory disease [Not Recovered/Not Resolved]
  - Pelvic pain [Not Recovered/Not Resolved]
  - Paraesthesia [None]
  - Rash erythematous [None]
